FAERS Safety Report 21089550 (Version 2)
Quarter: 2022Q3

REPORT INFORMATION
  Report Type: Report from Study
  Country: BR (occurrence: BR)
  Receive Date: 20220715
  Receipt Date: 20220811
  Transmission Date: 20221027
  Serious: Yes (Hospitalization, Other)
  Sender: FDA-Public Use
  Company Number: BR-JNJFOC-20220329748

PATIENT
  Age: 8 Decade
  Sex: Female
  Weight: 41 kg

DRUGS (3)
  1. INFLIXIMAB [Suspect]
     Active Substance: INFLIXIMAB
     Indication: Colitis ulcerative
     Dosage: 100MG AMPOULE BOTTLE, 3 VIALS
     Route: 041
     Dates: start: 20211001
  2. AZATHIOPRINE [Concomitant]
     Active Substance: AZATHIOPRINE
  3. MESALAMINE [Concomitant]
     Active Substance: MESALAMINE

REACTIONS (5)
  - Cytomegalovirus infection [Recovering/Resolving]
  - Haematochezia [Recovered/Resolved]
  - Pain [Not Recovered/Not Resolved]
  - Weight decreased [Unknown]
  - Drug ineffective [Unknown]
